FAERS Safety Report 23747511 (Version 1)
Quarter: 2024Q2

REPORT INFORMATION
  Report Type: Spontaneous
  Country: US (occurrence: None)
  Receive Date: 20240415
  Receipt Date: 20240415
  Transmission Date: 20240716
  Serious: No
  Sender: FDA-Public Use
  Company Number: None

PATIENT
  Age: 68 Year
  Sex: Female
  Weight: 38.56 kg

DRUGS (1)
  1. ABILIFY [Suspect]
     Active Substance: ARIPIPRAZOLE

REACTIONS (10)
  - Oesophageal dilatation [None]
  - Musculoskeletal stiffness [None]
  - Impaired gastric emptying [None]
  - Insomnia [None]
  - Anxiety [None]
  - Decreased appetite [None]
  - Gait disturbance [None]
  - Muscle atrophy [None]
  - Parkinsonism [None]
  - Weight gain poor [None]
